FAERS Safety Report 9413534 (Version 2)
Quarter: 2013Q2

REPORT INFORMATION
  Report Type: Spontaneous
  Country: JP (occurrence: None)
  Receive Date: 20130415
  Receipt Date: 20130605
  Transmission Date: 20140414
  Serious: Yes (Hospitalization, Other)
  Sender: FDA-Public Use
  Company Number: 221063

PATIENT
  Age: 77 Year
  Sex: Male

DRUGS (19)
  1. DAIVONEX [Suspect]
     Indication: PSORIASIS
     Route: 061
  2. OXAROL [Suspect]
     Indication: PSORIASIS
     Route: 061
  3. BONALFA-HIGH [Suspect]
     Indication: PSORIASIS
     Route: 061
  4. BAYASPIRIN (ACETYLSALICYLIC ACID) (ACETYLSALICYLIC ACID) [Concomitant]
  5. HERBESSER (DILTIAZEM HYDROCHLORIDE) [Concomitant]
  6. MICARDIS (TELMISARTAN) [Concomitant]
  7. OMEPRAZON (OMEPRAZOLE) [Concomitant]
  8. LASIX (FUROSEMIDE) [Concomitant]
  9. FEBURIC (FEBUXOSTAT) [Concomitant]
  10. THEOLONG (THEOPHYLLINE) [Concomitant]
  11. MUCODYNE (CARBOCISTEINE) [Concomitant]
  12. ALESION (EPINASTINE HYDROCHLORIDE) [Concomitant]
  13. IPD (SUPLATAST TOSILATE) [Concomitant]
  14. PROMAC-D (POLAPREZINC) [Concomitant]
  15. ALLEGRA [Concomitant]
  16. LENDORMIN (BROTIZOLAM) [Concomitant]
  17. ANTEBATE (BETAMETHASONE  BUTYRATE PROPIONATE_ [Concomitant]
  18. GENTACIN (GENTAMICIN SULFATE) [Concomitant]
  19. HIRUDOID (HEPARINOID) [Concomitant]

REACTIONS (3)
  - Hypercalcaemia [None]
  - Depressed level of consciousness [None]
  - Renal impairment [None]
